FAERS Safety Report 5132961-X (Version None)
Quarter: 2006Q4

REPORT INFORMATION
  Report Type: 
  Country: None (occurrence: None)
  Receive Date: 20061019
  Receipt Date: 20061019
  Transmission Date: 20070319
  Serious: No
  Sender: FDA-Public Use
  Company Number: None

PATIENT
  Age: 3 Year
  Sex: Male
  Weight: 16.3295 kg

DRUGS (1)
  1. PEDIACARE MEDICATED FREEZER PACK - PFIZER [Suspect]
     Indication: COUGH
     Dosage: ONE POPSICLE EVERY 6-8 HOURS ORALLY
     Route: 048
     Dates: start: 20061013, end: 20061014

REACTIONS (4)
  - IMPAIRED HEALING [None]
  - MOUTH INJURY [None]
  - ORAL PAIN [None]
  - PHARMACEUTICAL PRODUCT COMPLAINT [None]
